FAERS Safety Report 9332984 (Version 1)
Quarter: 2013Q2

REPORT INFORMATION
  Report Type: Spontaneous
  Country: ES (occurrence: ES)
  Receive Date: 20130606
  Receipt Date: 20130606
  Transmission Date: 20140414
  Serious: Yes (Other)
  Sender: FDA-Public Use
  Company Number: ES-PFIZER INC-2013170885

PATIENT
  Age: 70 Year
  Sex: Male
  Weight: 90 kg

DRUGS (10)
  1. LYRICA [Suspect]
     Indication: BACK PAIN
     Dosage: 25 MG, 1X/DAY
     Route: 048
     Dates: start: 201201, end: 201207
  2. LYRICA [Suspect]
     Dosage: 75 MG, 1X/DAY
     Route: 048
     Dates: start: 201207, end: 20130530
  3. ACETAMINOPHEN [Concomitant]
     Dosage: UNK
  4. ACFOL [Concomitant]
     Dosage: UNK
  5. ALPRAZOLAM [Concomitant]
     Dosage: UNK
  6. CITALOPRAM [Concomitant]
     Dosage: UNK
  7. TAMSULOSIN [Concomitant]
     Indication: PROPHYLAXIS
     Dosage: UNK
  8. OMEPRAZOLE [Concomitant]
     Dosage: UNK
  9. CIDINE [Concomitant]
     Dosage: UNK
  10. AMERIDE [Concomitant]
     Dosage: UNK

REACTIONS (2)
  - Aggression [Recovered/Resolved]
  - Malaise [Recovered/Resolved]
